FAERS Safety Report 14676944 (Version 1)
Quarter: 2018Q1

REPORT INFORMATION
  Report Type: Spontaneous
  Country: IT (occurrence: IT)
  Receive Date: 20180324
  Receipt Date: 20180324
  Transmission Date: 20180509
  Serious: Yes (Hospitalization)
  Sender: FDA-Public Use
  Company Number: IT-CONCORDIA PHARMACEUTICALS INC.-E2B_00010658

PATIENT
  Age: 74 Year
  Sex: Female

DRUGS (6)
  1. LANOXIN [Suspect]
     Active Substance: DIGOXIN
     Indication: CARDIAC FAILURE
     Route: 048
     Dates: start: 20170101, end: 20170715
  2. FLUOXETINE [Concomitant]
     Active Substance: FLUOXETINE HYDROCHLORIDE
  3. LETROZOLE. [Concomitant]
     Active Substance: LETROZOLE
  4. GABAPENTIN. [Concomitant]
     Active Substance: GABAPENTIN
  5. COAPROVEL 300 MG/12.5 MG FILM-COATED TABLETS [Concomitant]
  6. TOTALIP [Concomitant]
     Active Substance: ATORVASTATIN

REACTIONS (3)
  - Dyspnoea [Unknown]
  - Palpitations [Unknown]
  - Extrasystoles [Unknown]

NARRATIVE: CASE EVENT DATE: 20170715
